FAERS Safety Report 16037568 (Version 5)
Quarter: 2020Q2

REPORT INFORMATION
  Report Type: Spontaneous
  Country: US (occurrence: US)
  Receive Date: 20190305
  Receipt Date: 20200611
  Transmission Date: 20200713
  Serious: Yes (Other)
  Sender: FDA-Public Use
  Company Number: US-PFIZER INC-2019095116

PATIENT
  Age: 44 Year
  Sex: Female
  Weight: 73.47 kg

DRUGS (8)
  1. LETROZOLE. [Concomitant]
     Active Substance: LETROZOLE
     Dosage: 2.5 MG, CYCLIC(ONCE DAILY 28 DAY CYCLE)
     Dates: start: 20181130
  2. CALCIUM [Concomitant]
     Active Substance: CALCIUM
     Dosage: 1400 MG, DAILY
     Dates: start: 20181129
  3. IBRANCE [Suspect]
     Active Substance: PALBOCICLIB
     Dosage: 100 MG
     Dates: start: 201901, end: 201909
  4. LUPRON DEPOT [Concomitant]
     Active Substance: LEUPROLIDE ACETATE
     Dosage: 3.75 MG, MONTHLY
     Dates: start: 20181129
  5. PROLIA [Concomitant]
     Active Substance: DENOSUMAB
     Dosage: UNK
     Route: 042
     Dates: start: 20181129, end: 20181129
  6. XGEVA [Concomitant]
     Active Substance: DENOSUMAB
     Dosage: UNK UNK, MONTHLY(120MG, 1.7 ML)
     Dates: start: 20181221
  7. IBRANCE [Suspect]
     Active Substance: PALBOCICLIB
     Dosage: 75 MG, CYCLIC (75MG ONCE DAILY 21 DAYS ON 7 DAYS OFF)
     Dates: start: 201910
  8. IBRANCE [Suspect]
     Active Substance: PALBOCICLIB
     Indication: BREAST CANCER METASTATIC
     Dosage: 125 MG
     Dates: start: 20181130, end: 20181221

REACTIONS (15)
  - Arthralgia [Not Recovered/Not Resolved]
  - Gait disturbance [Unknown]
  - Alopecia [Unknown]
  - Taste disorder [Unknown]
  - Malaise [Unknown]
  - Weight increased [Unknown]
  - Immune system disorder [Unknown]
  - Myalgia [Not Recovered/Not Resolved]
  - Bone pain [Not Recovered/Not Resolved]
  - Decreased appetite [Unknown]
  - Thirst [Unknown]
  - Appendicitis [Unknown]
  - Pain [Not Recovered/Not Resolved]
  - White blood cell count decreased [Unknown]
  - Fatigue [Not Recovered/Not Resolved]
